FAERS Safety Report 8592450-7 (Version None)
Quarter: 2012Q3

REPORT INFORMATION
  Report Type: 
  Country: None (occurrence: None)
  Receive Date: 20120814
  Receipt Date: 20120808
  Transmission Date: 20120928
  Serious: Yes (Other)
  Sender: FDA-Public Use
  Company Number: JP-MSD JAPAN-2012SP036400

PATIENT

DRUGS (17)
  1. REBETOL [Suspect]
     Dosage: 400 MG, QD
     Route: 048
     Dates: start: 20120528, end: 20120624
  2. REBETOL [Suspect]
     Indication: HEPATITIS C
     Dosage: 600 MG, QD
     Route: 048
     Dates: start: 20120417, end: 20120513
  3. PAXIL [Concomitant]
     Indication: DEPRESSION
     Dosage: FORM: POR
     Route: 048
  4. TELAVIC [Suspect]
     Indication: HEPATITIS C
     Dosage: 1000 MG, QD
     Route: 048
     Dates: start: 20120417, end: 20120709
  5. CLARITIN REDITABS [Concomitant]
     Indication: PROPHYLAXIS
     Dosage: FORM: POR
     Route: 048
  6. TOLEDOMIN [Concomitant]
     Indication: DEPRESSION
     Dosage: FORM: POR
     Route: 048
  7. LORAZEPAM [Concomitant]
     Indication: DEPRESSION
     Dosage: FORM: POR
     Route: 048
  8. GOODMIN [Concomitant]
     Indication: DEPRESSION
     Dosage: 0.5 MG, QD
     Route: 048
  9. REBETOL [Suspect]
     Dosage: 600 MG, QD
     Route: 048
     Dates: start: 20120625
  10. EPADEL [Concomitant]
     Indication: HYPERLIPIDAEMIA
     Dosage: 1800 MG: POR
     Route: 048
  11. ROHYPNOL [Concomitant]
     Indication: DEPRESSION
     Dosage: FORM: POR
     Route: 048
  12. LIVALO [Concomitant]
     Indication: HYPERLIPIDAEMIA
     Dosage: FORM: POR
     Route: 048
  13. REBETOL [Suspect]
     Dosage: 200 MG, QD
     Route: 048
     Dates: start: 20120514, end: 20120527
  14. SEROQUEL [Concomitant]
     Indication: DEPRESSION
     Dosage: FORM: POR
     Route: 048
  15. MAGLAX (MAGNESIUM OXIDE) [Concomitant]
     Indication: CONSTIPATION
     Dosage: FORM: POR
     Route: 048
  16. PEGINTERFERON ALFA-2B [Suspect]
     Indication: HEPATITIS C
     Dosage: 1.5 ?G/KG, QW
     Route: 058
     Dates: start: 20120417
  17. SODIUM FERROUS CITRATE [Concomitant]
     Indication: IRON DEFICIENCY ANAEMIA
     Dosage: FORM: POR
     Route: 048

REACTIONS (1)
  - ANAEMIA [None]
